FAERS Safety Report 20727930 (Version 3)
Quarter: 2023Q4

REPORT INFORMATION
  Report Type: Spontaneous
  Country: CN (occurrence: CN)
  Receive Date: 20220419
  Receipt Date: 20231215
  Transmission Date: 20240109
  Serious: Yes (Death, Other)
  Sender: FDA-Public Use
  Company Number: CN-BAXTER-2022BAX008570

PATIENT
  Sex: Female

DRUGS (17)
  1. DOXORUBICIN [Suspect]
     Active Substance: DOXORUBICIN
     Indication: Plasma cell myeloma
     Dosage: FIRST COURSE OF DARATUMUMAB+PAD REGIMEN CHEMOTHERAPY, LIPOSOMAL DOXORUBICIN 30 MG/M2 ON DAY 1
     Route: 065
     Dates: start: 20200625
  2. DOXORUBICIN [Suspect]
     Active Substance: DOXORUBICIN
     Dosage: SECOND COURSE OF DARATUMUMAB+PAD REGIMEN CHEMOTHERAPY
     Route: 065
     Dates: start: 20200811
  3. BORTEZOMIB [Suspect]
     Active Substance: BORTEZOMIB
     Indication: Plasma cell myeloma
     Dosage: VD REGIMEN CHEMOTHERAPY, 1.3 MG/M2 ON DAYS 1, 8, 15 AND 22
     Route: 065
     Dates: start: 20191230
  4. BORTEZOMIB [Suspect]
     Active Substance: BORTEZOMIB
     Dosage: FIRST COURSE OF DARATUMUMAB+PAD REGIMEN CHEMOTHERAPY, 1.3 MG/M2 ON DAYS 1,4, 8 AND 11
     Route: 065
     Dates: start: 20200625
  5. BORTEZOMIB [Suspect]
     Active Substance: BORTEZOMIB
     Dosage: SECOND COURSE OF DARATUMUMAB+PAD REGIMEN CHEMOTHERAPY
     Route: 065
     Dates: start: 20200811
  6. IXAZOMIB [Suspect]
     Active Substance: IXAZOMIB
     Indication: Plasma cell myeloma
     Dosage: ID REGIMEN CHEMOTHERAPY, 4 MG ON DAYS 1, 8, 15
     Route: 065
     Dates: start: 202005
  7. DEXAMETHASONE [Suspect]
     Active Substance: DEXAMETHASONE
     Indication: Plasma cell myeloma
     Dosage: VD REGIMEN CHEMOTHERAPY, 20.25 MG ON DAYS 1, 2, 8, 9, 15, 16, 22 AND 23
     Route: 065
     Dates: start: 20191230
  8. DEXAMETHASONE [Suspect]
     Active Substance: DEXAMETHASONE
     Indication: Chills
     Dosage: RD REGIMEN CHEMOTHERAPY, 20.25 MG DAYS 1, 2, 4, 5 8, 9, 11, AND 12
     Route: 065
     Dates: start: 202004
  9. DEXAMETHASONE [Suspect]
     Active Substance: DEXAMETHASONE
     Indication: Pyrexia
     Dosage: ID REGIMEN CHEMOTHERAPY, 20.25 MG ON DAYS 1, 2, 8, 9, 15, 16, 22, 23
     Route: 065
     Dates: start: 202005
  10. DEXAMETHASONE [Suspect]
     Active Substance: DEXAMETHASONE
     Dosage: FIRST COURSE OF DARATUMUMAB+PAD REGIMEN CHEMOTHERAPY, 20.25 MG ON DAYS 1, 2, 8, 9, 15, 16, 22 AND 23
     Route: 065
     Dates: start: 20200625
  11. DEXAMETHASONE [Suspect]
     Active Substance: DEXAMETHASONE
     Dosage: ANTI- ALLERGY TREATMENT
     Route: 065
     Dates: start: 202006
  12. DEXAMETHASONE [Suspect]
     Active Substance: DEXAMETHASONE
     Dosage: SECOND COURSE OF DARATUMUMAB+PAD REGIMEN CHEMOTHERAPY
     Route: 065
     Dates: start: 20200811
  13. LENALIDOMIDE [Suspect]
     Active Substance: LENALIDOMIDE
     Indication: Plasma cell myeloma
     Dosage: RD REGIMEN CHEMOTHERAPY, 10 MG DAYS 1 TO 21
     Route: 065
     Dates: start: 202004
  14. DARATUMUMAB [Suspect]
     Active Substance: DARATUMUMAB
     Indication: Plasma cell myeloma
     Dosage: FIRST COURSE OF DARATUMUMAB+PAD REGIMEN CHEMOTHERAPY,16 MG/KG ON DAYS 1, 8, 15, AND 22
     Route: 065
     Dates: start: 20200625
  15. DARATUMUMAB [Suspect]
     Active Substance: DARATUMUMAB
     Dosage: SECOND COURSE OF DARATUMUMAB+PAD REGIMEN CHEMOTHERAPY
     Route: 065
     Dates: start: 20200811
  16. METHYLPREDNISOLONE [Concomitant]
     Active Substance: METHYLPREDNISOLONE
     Indication: Chills
     Dosage: ANTI-ALLERGY TREATMENT
     Route: 065
     Dates: start: 202006
  17. METHYLPREDNISOLONE [Concomitant]
     Active Substance: METHYLPREDNISOLONE
     Indication: Pyrexia

REACTIONS (9)
  - Disease progression [Fatal]
  - Plasma cell myeloma [Fatal]
  - Cachexia [Unknown]
  - Condition aggravated [Recovering/Resolving]
  - Renal impairment [Fatal]
  - General physical health deterioration [Unknown]
  - Pain [Unknown]
  - Treatment noncompliance [Fatal]
  - Myelosuppression [Recovering/Resolving]

NARRATIVE: CASE EVENT DATE: 20200101
